FAERS Safety Report 23745552 (Version 1)
Quarter: 2024Q2

REPORT INFORMATION
  Report Type: Spontaneous
  Country: GB (occurrence: GB)
  Receive Date: 20240416
  Receipt Date: 20240416
  Transmission Date: 20240716
  Serious: No
  Sender: FDA-Public Use
  Company Number: None

PATIENT

DRUGS (4)
  1. ARIPIPRAZOLE [Suspect]
     Active Substance: ARIPIPRAZOLE
     Indication: Psychotic disorder
     Dosage: 5 MILLIGRAM (TABLET, TOTAL DURATION OF 62 DAYS)
     Route: 065
  2. ARIPIPRAZOLE [Suspect]
     Active Substance: ARIPIPRAZOLE
     Dosage: 15 MILLIGRAM (TABLET, TOTAL DURATION OF 62 DAYS)
     Route: 065
  3. ARIPIPRAZOLE [Suspect]
     Active Substance: ARIPIPRAZOLE
     Dosage: 10 MILLIGRAM (TABLET, TOTAL DURATION OF 62 DAYS)
     Route: 065
  4. ARIPIPRAZOLE [Suspect]
     Active Substance: ARIPIPRAZOLE
     Dosage: 20 MILLIGRAM (TABLET, TOTAL DURATION OF 62 DAYS)
     Route: 065
     Dates: start: 20230907, end: 20231019

REACTIONS (2)
  - Extrapyramidal disorder [Unknown]
  - Drug ineffective [Unknown]
